FAERS Safety Report 8000144-1 (Version None)
Quarter: 2011Q4

REPORT INFORMATION
  Report Type: 
  Country: None (occurrence: None)
  Receive Date: 20111220
  Receipt Date: 20111220
  Transmission Date: 20120403
  Serious: Yes (Hospitalization, Other)
  Sender: FDA-Public Use
  Company Number: None

PATIENT
  Age: 35 Year
  Sex: Female
  Weight: 62.5964 kg

DRUGS (1)
  1. CHORIONIC GONADTROPIN [Suspect]
     Indication: OVERWEIGHT
     Dates: start: 20110301, end: 20110412

REACTIONS (3)
  - MIGRAINE [None]
  - ELECTROLYTE IMBALANCE [None]
  - INTRACRANIAL ANEURYSM [None]
